FAERS Safety Report 21417105 (Version 3)
Quarter: 2022Q4

REPORT INFORMATION
  Report Type: Spontaneous
  Country: US (occurrence: US)
  Receive Date: 20221006
  Receipt Date: 20221122
  Transmission Date: 20230112
  Serious: Yes (Hospitalization, Other)
  Sender: FDA-Public Use
  Company Number: US-BAYER-2022A124994

PATIENT
  Age: 79 Year
  Sex: Male
  Weight: 71.202 kg

DRUGS (5)
  1. RIVAROXABAN [Suspect]
     Active Substance: RIVAROXABAN
     Indication: Product used for unknown indication
     Route: 048
  2. ADEMPAS [Suspect]
     Active Substance: RIOCIGUAT
     Indication: Pulmonary arterial hypertension
     Dosage: 0.5 MG, TID
     Route: 048
     Dates: start: 20220818
  3. ADEMPAS [Suspect]
     Active Substance: RIOCIGUAT
     Indication: Pulmonary arterial hypertension
     Dosage: 1.0 MG, TID
     Route: 048
  4. ADEMPAS [Suspect]
     Active Substance: RIOCIGUAT
     Indication: Pulmonary arterial hypertension
     Dosage: UNK
     Dates: start: 20220621, end: 20221011
  5. BOSENTAN [Concomitant]
     Active Substance: BOSENTAN

REACTIONS (8)
  - Gastrointestinal disorder therapy [Unknown]
  - Anaemia [Unknown]
  - Oedema peripheral [Recovered/Resolved]
  - Fatigue [Unknown]
  - Abdominal pain upper [Unknown]
  - Haematocrit decreased [Unknown]
  - Gastrointestinal ulcer [Unknown]
  - Nausea [Unknown]

NARRATIVE: CASE EVENT DATE: 20220101
